FAERS Safety Report 8709659 (Version 2)
Quarter: 2014Q3

REPORT INFORMATION
  Report Type: Spontaneous
  Country: US (occurrence: US)
  Receive Date: 20120806
  Receipt Date: 20140725
  Transmission Date: 20150326
  Serious: Yes (Hospitalization, Other)
  Sender: FDA-Public Use
  Company Number: US-009507513-2009-198050-NL

PATIENT
  Sex: Female
  Weight: 73.3 kg

DRUGS (3)
  1. NUVARING [Suspect]
     Active Substance: ETHINYL ESTRADIOL\ETONOGESTREL
     Indication: CONTRACEPTION
     Dosage: CONTINUING: NO
     Route: 067
     Dates: start: 20070314, end: 20071015
  2. SYNTHROID [Concomitant]
     Active Substance: LEVOTHYROXINE SODIUM
     Indication: HYPOTHYROIDISM
     Dosage: 137 ?G, UNK
  3. FLEXERIL [Concomitant]
     Active Substance: CYCLOBENZAPRINE HYDROCHLORIDE
     Indication: PRODUCT USED FOR UNKNOWN INDICATION
     Dates: start: 200704

REACTIONS (18)
  - Sarcoidosis [Not Recovered/Not Resolved]
  - Obsessive-compulsive disorder [Unknown]
  - Depression [Unknown]
  - Thrombosis [Unknown]
  - Muscle strain [Unknown]
  - Somnolence [Unknown]
  - Fatigue [Unknown]
  - Arthralgia [Unknown]
  - Bronchitis [Unknown]
  - Chills [Unknown]
  - Headache [Unknown]
  - Sleep paralysis [Unknown]
  - Deep vein thrombosis [Unknown]
  - Temperature intolerance [Unknown]
  - Weight fluctuation [Unknown]
  - Pulmonary embolism [Recovering/Resolving]
  - Back pain [Unknown]
  - Vulvovaginal candidiasis [Unknown]

NARRATIVE: CASE EVENT DATE: 20070517
